FAERS Safety Report 5123163-1 (Version None)
Quarter: 2006Q4

REPORT INFORMATION
  Report Type: 
  Country: None (occurrence: None)
  Receive Date: 20061005
  Receipt Date: 20060914
  Transmission Date: 20070319
  Serious: Yes (Hospitalization)
  Sender: FDA-Public Use
  Company Number: US200609003426

PATIENT
  Age: 41 Year
  Sex: Female

DRUGS (3)
  1. STRATTERA [Suspect]
     Dosage: 100 MG, DAILY (1/D), UNK
     Dates: start: 20020101
  2. LEXAPRO   /USA/(ESCITALOPRAM) [Concomitant]
  3. BIAXIN [Concomitant]

REACTIONS (3)
  - DRUG INTERACTION [None]
  - HYPOMANIA [None]
  - PSYCHOTIC DISORDER [None]
